FAERS Safety Report 11908781 (Version 2)
Quarter: 2016Q2

REPORT INFORMATION
  Report Type: Spontaneous
  Country: US (occurrence: US)
  Receive Date: 20160111
  Receipt Date: 20160414
  Transmission Date: 20160815
  Serious: No
  Sender: FDA-Public Use
  Company Number: US-GALDERMA-US15008966

PATIENT
  Age: 56 Year
  Sex: Female

DRUGS (6)
  1. FEKKAI SHAMPOO [Concomitant]
     Route: 061
  2. OLAY BODY MOISTURIZER [Concomitant]
     Route: 061
  3. LISINOPRIL. [Concomitant]
     Active Substance: LISINOPRIL
     Indication: BLOOD PRESSURE ABNORMAL
     Dosage: 10 MG
     Route: 048
     Dates: start: 201411
  4. SOOLANTRA [Suspect]
     Active Substance: IVERMECTIN
     Indication: ROSACEA
     Dosage: 1%
     Route: 061
     Dates: start: 20151106, end: 20151206
  5. CLINIQUE EYE SHADOW [Concomitant]
     Route: 061
  6. METRONIDAZOLE CREAM (METRONIDAZOLE) 0.75% [Concomitant]
     Active Substance: METRONIDAZOLE
     Route: 061
     Dates: start: 20151106

REACTIONS (8)
  - Rash macular [Recovering/Resolving]
  - Pruritus [Recovering/Resolving]
  - Urticaria [Recovering/Resolving]
  - Dry skin [Recovering/Resolving]
  - Eyelid oedema [Recovering/Resolving]
  - Drug ineffective [Recovered/Resolved]
  - Eyelids pruritus [Recovering/Resolving]
  - Dermatitis contact [Unknown]

NARRATIVE: CASE EVENT DATE: 201511
